FAERS Safety Report 12632923 (Version 2)
Quarter: 2016Q3

REPORT INFORMATION
  Report Type: Spontaneous
  Country: US (occurrence: US)
  Receive Date: 20160808
  Receipt Date: 20160808
  Transmission Date: 20161109
  Serious: No
  Sender: FDA-Public Use
  Company Number: US-BEH-2016057562

PATIENT
  Sex: Female
  Weight: 65 kg

DRUGS (27)
  1. HIZENTRA [Suspect]
     Active Substance: HUMAN IMMUNOGLOBULIN G
     Route: 058
  2. ZETIA [Concomitant]
     Active Substance: EZETIMIBE
  3. VITAMIN D3 [Concomitant]
     Active Substance: CHOLECALCIFEROL
  4. METRONIDAZOLE. [Concomitant]
     Active Substance: METRONIDAZOLE
  5. LIDODERM [Concomitant]
     Active Substance: LIDOCAINE
  6. PROTONIX [Concomitant]
     Active Substance: PANTOPRAZOLE SODIUM
  7. HYDROCODONE-ACETAMINOPHEN [Concomitant]
     Active Substance: ACETAMINOPHEN\HYDROCODONE
  8. KIRKLAND SIGNATURE ALLER TEC ALLERGY [Concomitant]
     Active Substance: CETIRIZINE HYDROCHLORIDE
  9. HIZENTRA [Suspect]
     Active Substance: HUMAN IMMUNOGLOBULIN G
     Indication: IMMUNODEFICIENCY COMMON VARIABLE
     Route: 058
  10. METOPROLOL TARTRATE. [Concomitant]
     Active Substance: METOPROLOL TARTRATE
  11. SYMBICORT [Concomitant]
     Active Substance: BUDESONIDE\FORMOTEROL FUMARATE DIHYDRATE
  12. BIOTIN [Concomitant]
     Active Substance: BIOTIN
  13. HIZENTRA [Suspect]
     Active Substance: HUMAN IMMUNOGLOBULIN G
     Route: 058
  14. PANTOPRAZOLE [Concomitant]
     Active Substance: PANTOPRAZOLE SODIUM
  15. PRAVACHOL [Concomitant]
     Active Substance: PRAVASTATIN SODIUM
  16. HIZENTRA [Suspect]
     Active Substance: HUMAN IMMUNOGLOBULIN G
  17. NIACIN FLUSH FREE [Concomitant]
  18. DIPHENHYDRAMINE. [Concomitant]
     Active Substance: DIPHENHYDRAMINE
  19. ASPIRIN. [Concomitant]
     Active Substance: ASPIRIN
  20. PREDNISONE. [Concomitant]
     Active Substance: PREDNISONE
  21. ROPINIROLE. [Concomitant]
     Active Substance: ROPINIROLE
  22. COENZYME Q10 [Concomitant]
     Active Substance: UBIDECARENONE
  23. EPIPEN [Concomitant]
     Active Substance: EPINEPHRINE
  24. LYRICA [Concomitant]
     Active Substance: PREGABALIN
  25. FLUTICASONE PROP [Concomitant]
  26. PATANASE [Concomitant]
     Active Substance: OLOPATADINE HYDROCHLORIDE
  27. BACTRIM DS [Concomitant]
     Active Substance: SULFAMETHOXAZOLE\TRIMETHOPRIM

REACTIONS (2)
  - Infusion site discomfort [Unknown]
  - Infusion site swelling [Unknown]
